FAERS Safety Report 6504854-4 (Version None)
Quarter: 2009Q4

REPORT INFORMATION
  Report Type: 
  Country: None (occurrence: None)
  Receive Date: 20091218
  Receipt Date: 20091209
  Transmission Date: 20100525
  Serious: Yes (Life-Threatening)
  Sender: FDA-Public Use
  Company Number: JP-JNJFOC-20091100297

PATIENT
  Sex: Female
  Weight: 50 kg

DRUGS (4)
  1. REMICADE [Suspect]
     Route: 042
     Dates: start: 20090116, end: 20091027
  2. REMICADE [Suspect]
     Indication: CROHN'S DISEASE
     Dosage: 4 INFUSIONS ON UNSPECIFED DATES, DOSE 5 MG/KG
     Route: 042
     Dates: start: 20090116, end: 20091027
  3. DIPHENHYDRAMINE HYDROCHLORIDE [Concomitant]
     Route: 048
  4. SOLU-CORTEF [Concomitant]
     Route: 041

REACTIONS (4)
  - DYSPNOEA [None]
  - HYPOTENSION [None]
  - INFUSION RELATED REACTION [None]
  - OXYGEN SATURATION DECREASED [None]
